FAERS Safety Report 8187263-4 (Version None)
Quarter: 2012Q1

REPORT INFORMATION
  Report Type: 
  Country: None (occurrence: None)
  Receive Date: 20120302
  Receipt Date: 20120216
  Transmission Date: 20120608
  Serious: No
  Sender: FDA-Public Use
  Company Number: 2012SP005653

PATIENT
  Age: 37 Year
  Sex: Male

DRUGS (4)
  1. OLANZAPINE [Concomitant]
  2. SYCREST (ASENAPINE /05706901/) [Suspect]
     Indication: BIPOLAR DISORDER
     Dosage: 5 MG; BID; SL
     Route: 060
     Dates: start: 20120122, end: 20120125
  3. LITHIUM CARBONATE [Concomitant]
  4. VALPROATE SODIUM [Concomitant]

REACTIONS (8)
  - HYPOAESTHESIA ORAL [None]
  - HYPOTENSION [None]
  - THOUGHT BLOCKING [None]
  - DRUG EFFECT DECREASED [None]
  - BIPOLAR I DISORDER [None]
  - MANIA [None]
  - DRUG ABUSE [None]
  - PSYCHOTIC BEHAVIOUR [None]
